FAERS Safety Report 4681510-9 (Version None)
Quarter: 2005Q2

REPORT INFORMATION
  Report Type: 
  Country: None (occurrence: None)
  Receive Date: 20050602
  Receipt Date: 20050525
  Transmission Date: 20051028
  Serious: Yes (Hospitalization)
  Sender: FDA-Public Use
  Company Number: 2005079569

PATIENT
  Sex: Female
  Weight: 90.7194 kg

DRUGS (14)
  1. GLYCERYL TRINITRATE (GLYCERYL TRINITRATE) [Suspect]
     Indication: ARRHYTHMIA
     Dosage: (0.4 MG AS NEEDED)
  2. IMDUR [Concomitant]
  3. PLAVIX [Concomitant]
  4. TOPROL-XL [Concomitant]
  5. DITROPAN XL [Concomitant]
  6. PRAVACHOL [Concomitant]
  7. ESTRADERM [Concomitant]
  8. LOTREL [Concomitant]
  9. MOBIC [Concomitant]
  10. PREVACID [Concomitant]
  11. PREMARIN VAGINAL CREAM (ESTROGENS CONJUATED) [Concomitant]
  12. DARVOCET-N (DEXTROPROPOXYPHENE NAPSILATE, PARACETAMOL) [Concomitant]
  13. NEXIUM [Concomitant]
  14. ZANAFLEX [Concomitant]

REACTIONS (5)
  - CARPAL TUNNEL SYNDROME [None]
  - FALL [None]
  - LOWER LIMB FRACTURE [None]
  - PELVIC FRACTURE [None]
  - SUPERINFECTION [None]
